FAERS Safety Report 16277237 (Version 1)
Quarter: 2019Q2

REPORT INFORMATION
  Report Type: Spontaneous
  Country: US (occurrence: US)
  Receive Date: 20190506
  Receipt Date: 20190506
  Transmission Date: 20190711
  Serious: No
  Sender: FDA-Public Use
  Company Number: US-JNJFOC-20190438290

PATIENT
  Sex: Male

DRUGS (1)
  1. IMBRUVICA [Suspect]
     Active Substance: IBRUTINIB
     Indication: PRODUCT USED FOR UNKNOWN INDICATION
     Route: 048

REACTIONS (8)
  - Abdominal pain upper [Unknown]
  - Muscle spasms [Unknown]
  - Weight decreased [Unknown]
  - Oral discomfort [Unknown]
  - Osteoporosis [Unknown]
  - Cheilitis [Unknown]
  - Body height decreased [Unknown]
  - Bone deformity [Unknown]
